FAERS Safety Report 7768535-1 (Version None)
Quarter: 2011Q3

REPORT INFORMATION
  Report Type: 
  Country: None (occurrence: None)
  Receive Date: 20110922
  Receipt Date: 20101018
  Transmission Date: 20111222
  Serious: No
  Sender: FDA-Public Use
  Company Number: US-ASTRAZENECA-2010SE49023

PATIENT
  Age: 43 Year
  Sex: Female
  Weight: 73.5 kg

DRUGS (3)
  1. SEROQUEL [Suspect]
     Route: 048
     Dates: start: 20070101
  2. SEROQUEL [Suspect]
     Route: 048
  3. SEROQUEL [Suspect]
     Dosage: HALF AT NIGHT AND HALF IN THE MORNING
     Route: 048

REACTIONS (7)
  - SINUS CONGESTION [None]
  - PAIN IN EXTREMITY [None]
  - BACK PAIN [None]
  - WEIGHT INCREASED [None]
  - HYPERHIDROSIS [None]
  - INCORRECT DOSE ADMINISTERED [None]
  - PANIC REACTION [None]
